FAERS Safety Report 10028457 (Version 5)
Quarter: 2014Q2

REPORT INFORMATION
  Report Type: Report from Study
  Country: CA (occurrence: CA)
  Receive Date: 20140321
  Receipt Date: 20140519
  Transmission Date: 20141212
  Serious: Yes (Hospitalization)
  Sender: FDA-Public Use
  Company Number: CA-BRISTOL-MYERS SQUIBB COMPANY-20299244

PATIENT
  Age: 68 Year
  Sex: Female

DRUGS (27)
  1. ORENCIA [Suspect]
     Indication: RHEUMATOID ARTHRITIS
     Dosage: 1DF:1000 UNIT NOS
     Dates: start: 20120815
  2. METHOTREXATE [Concomitant]
  3. TYLENOL [Concomitant]
  4. ADVAIR [Concomitant]
  5. CALCIUM [Concomitant]
  6. CELEXA [Concomitant]
  7. VITAMIN B12 [Concomitant]
  8. FOLIC ACID [Concomitant]
  9. LASIX [Concomitant]
  10. GABAPENTIN [Concomitant]
  11. HYDROMORPH CONTIN [Concomitant]
  12. PLAQUENIL [Concomitant]
  13. NOVORAPID [Concomitant]
  14. PANTOLOC [Concomitant]
  15. MIRALAX [Concomitant]
  16. POTASSIUM CHLORIDE [Concomitant]
  17. PREDNISONE [Concomitant]
  18. VENTOLIN [Concomitant]
  19. SALINEX [Concomitant]
  20. SPIRIVA [Concomitant]
  21. VITAMIN D [Concomitant]
  22. IMOVANE [Concomitant]
  23. MAALOX [Concomitant]
  24. DILAUDID [Concomitant]
  25. ATIVAN [Concomitant]
  26. ARTIFICIAL TEARS [Concomitant]
  27. K-DUR [Concomitant]

REACTIONS (7)
  - Staphylococcal infection [Unknown]
  - Lower respiratory tract infection [Unknown]
  - Dehydration [Unknown]
  - Vomiting [Unknown]
  - Cough [Unknown]
  - Lethargy [Unknown]
  - Wound [Unknown]
